FAERS Safety Report 18653481 (Version 1)
Quarter: 2020Q4

REPORT INFORMATION
  Report Type: Spontaneous
  Country: US (occurrence: US)
  Receive Date: 20201223
  Receipt Date: 20201223
  Transmission Date: 20210114
  Serious: Yes (Other)
  Sender: FDA-Public Use
  Company Number: US-SA-2020SA366617

PATIENT

DRUGS (2)
  1. ZANTAC [Suspect]
     Active Substance: RANITIDINE HYDROCHLORIDE
     Indication: HYPERCHLORHYDRIA
     Dosage: 75 MG, QD
  2. ZANTAC [Suspect]
     Active Substance: RANITIDINE HYDROCHLORIDE
     Indication: DYSPEPSIA
     Dosage: 25 MG, QD

REACTIONS (6)
  - Gastric cancer [Unknown]
  - Gallbladder cancer [Unknown]
  - Laparoscopic surgery [Unknown]
  - Oesophageal carcinoma [Unknown]
  - Barrett^s oesophagus [Unknown]
  - Pancreatic carcinoma [Unknown]

NARRATIVE: CASE EVENT DATE: 20150101
